FAERS Safety Report 11724892 (Version 1)
Quarter: 2015Q4

REPORT INFORMATION
  Report Type: Spontaneous
  Country: US (occurrence: US)
  Receive Date: 20151110
  Receipt Date: 20151110
  Transmission Date: 20160304
  Serious: No
  Sender: FDA-Public Use
  Company Number: US-ELI_LILLY_AND_COMPANY-US201109004336

PATIENT
  Age: 42 Year
  Sex: Female

DRUGS (1)
  1. FORTEO [Suspect]
     Active Substance: TERIPARATIDE
     Indication: OSTEOPOROSIS
     Dosage: 20 UG, QD
     Dates: start: 20110909

REACTIONS (13)
  - Tremor [Unknown]
  - Speech disorder [Unknown]
  - Drug dose omission [Unknown]
  - Vomiting [Unknown]
  - Diarrhoea [Recovered/Resolved]
  - Hyperhidrosis [Unknown]
  - Asthenia [Unknown]
  - Thinking abnormal [Unknown]
  - Feeling abnormal [Unknown]
  - Insomnia [Unknown]
  - Malaise [Unknown]
  - Nausea [Recovered/Resolved]
  - Headache [Recovering/Resolving]

NARRATIVE: CASE EVENT DATE: 20110911
